FAERS Safety Report 7731562-4 (Version None)
Quarter: 2011Q3

REPORT INFORMATION
  Report Type: 
  Country: None (occurrence: None)
  Receive Date: 20110906
  Receipt Date: 20110607
  Transmission Date: 20111222
  Serious: No
  Sender: FDA-Public Use
  Company Number: US-AMGEN-USASP2011029146

PATIENT
  Age: 45 Year
  Sex: Female

DRUGS (12)
  1. TRAZODONE HCL [Concomitant]
     Dosage: 1 MG, QD
  2. HUMIRA [Concomitant]
  3. PLAQUENIL [Concomitant]
  4. BUSPIRONE [Concomitant]
  5. PROLIA [Suspect]
     Indication: OSTEOPOROSIS
     Dosage: 60 MG, Q6MO
     Dates: start: 20110509
  6. OXYCODONE HCL [Concomitant]
  7. CALCIUM CARBONATE [Concomitant]
  8. VITAMIN D [Concomitant]
  9. PREDNISONE [Concomitant]
     Dosage: 1 MG, QD
  10. FLUOXETINE [Concomitant]
     Dosage: 2 MG, QD
  11. OMEPRAZOLE [Concomitant]
     Dosage: 1 MG, QD
  12. PROZAC [Concomitant]

REACTIONS (3)
  - PAIN IN EXTREMITY [None]
  - CYSTITIS [None]
  - TREMOR [None]
